FAERS Safety Report 18697465 (Version 6)
Quarter: 2021Q1

REPORT INFORMATION
  Report Type: Spontaneous
  Country: US (occurrence: US)
  Receive Date: 20210104
  Receipt Date: 20210315
  Transmission Date: 20210419
  Serious: Yes (Other)
  Sender: FDA-Public Use
  Company Number: NVSC2020US347150

PATIENT
  Sex: Female

DRUGS (3)
  1. DUREZOL [Suspect]
     Active Substance: DIFLUPREDNATE
     Indication: PRODUCT USED FOR UNKNOWN INDICATION
     Dosage: 1 DRP (1 GTT IN THE RIGHT EYE)
     Route: 065
  2. PREDNISONE. [Concomitant]
     Active Substance: PREDNISONE
     Indication: PRODUCT USED FOR UNKNOWN INDICATION
     Dosage: UNK
     Route: 065
  3. POLIMIXINA B [Concomitant]
     Active Substance: POLYMYXIN B
     Indication: PRODUCT USED FOR UNKNOWN INDICATION
     Dosage: UNK
     Route: 065

REACTIONS (10)
  - Tremor [Unknown]
  - Vomiting [Not Recovered/Not Resolved]
  - Cardiac disorder [Unknown]
  - Nervousness [Unknown]
  - Diarrhoea [Unknown]
  - Near death experience [Unknown]
  - Burning sensation [Recovering/Resolving]
  - Seizure [Unknown]
  - Illness [Recovering/Resolving]
  - Abdominal discomfort [Unknown]
